FAERS Safety Report 6567464-9 (Version None)
Quarter: 2010Q1

REPORT INFORMATION
  Report Type: 
  Country: None (occurrence: None)
  Receive Date: 20100202
  Receipt Date: 20100128
  Transmission Date: 20100710
  Serious: Yes (Hospitalization, Other)
  Sender: FDA-Public Use
  Company Number: ES-ABBOTT-10P-144-0622718-00

PATIENT
  Age: 64 Year
  Sex: Female

DRUGS (2)
  1. ADALIMUMAB [Suspect]
     Indication: RHEUMATOID ARTHRITIS
  2. LEFLUNOMIDE [Suspect]
     Indication: RHEUMATOID ARTHRITIS

REACTIONS (3)
  - CARDIAC FAILURE [None]
  - LIVER DISORDER [None]
  - PLEURAL EFFUSION [None]
